FAERS Safety Report 12695920 (Version 2)
Quarter: 2016Q4

REPORT INFORMATION
  Report Type: Report from Study
  Country: US (occurrence: US)
  Receive Date: 20160829
  Receipt Date: 20161014
  Transmission Date: 20170207
  Serious: Yes (Death, Hospitalization)
  Sender: FDA-Public Use
  Company Number: US-ACTELION-A-US2016-141250

PATIENT
  Age: 63 Year
  Sex: Female

DRUGS (2)
  1. VELETRI [Suspect]
     Active Substance: EPOPROSTENOL
     Indication: PULMONARY HYPERTENSION
     Dosage: 15.2 NG/KG, PER MIN
     Route: 042
     Dates: start: 20151112
  2. VELETRI [Suspect]
     Active Substance: EPOPROSTENOL
     Dosage: 15.2 NG/KG, UNK
     Route: 042
     Dates: start: 20151112

REACTIONS (4)
  - Hypotension [Unknown]
  - Death [Fatal]
  - Atrial fibrillation [Unknown]
  - Heart rate increased [Unknown]

NARRATIVE: CASE EVENT DATE: 20161003
